FAERS Safety Report 7000092-X (Version None)
Quarter: 2010Q3

REPORT INFORMATION
  Report Type: 
  Country: None (occurrence: None)
  Receive Date: 20100920
  Receipt Date: 20100906
  Transmission Date: 20110219
  Serious: Yes (Hospitalization, Other)
  Sender: FDA-Public Use
  Company Number: GB-ELI_LILLY_AND_COMPANY-GB201009001159

PATIENT
  Sex: Female
  Weight: 66.9 kg

DRUGS (3)
  1. SOMATROPIN [Suspect]
     Indication: GROWTH HORMONE DEFICIENCY
     Dosage: 0.4 MG, DAILY (1/D)
     Route: 058
     Dates: start: 20011107
  2. HYDROCORTISONE [Concomitant]
     Indication: HYPERADRENOCORTICISM
     Dates: start: 20010213
  3. ADCAL D3 [Concomitant]
     Indication: OSTEOPENIA
     Dates: start: 20040701

REACTIONS (3)
  - ABORTION SPONTANEOUS [None]
  - DRUG EXPOSURE DURING PREGNANCY [None]
  - HEMIPARESIS [None]
